FAERS Safety Report 10558106 (Version 2)
Quarter: 2015Q4

REPORT INFORMATION
  Report Type: Spontaneous
  Country: US (occurrence: US)
  Receive Date: 20141031
  Receipt Date: 20151023
  Transmission Date: 20160304
  Serious: No
  Sender: FDA-Public Use
  Company Number: US-GLAXOSMITHKLINE-US2014GSK013700

PATIENT
  Age: 71 Year
  Sex: Female

DRUGS (1)
  1. IMITREX [Suspect]
     Active Substance: SUMATRIPTAN\SUMATRIPTAN SUCCINATE
     Indication: MIGRAINE
     Dosage: 100 MG, PRN
     Route: 048
     Dates: start: 201008

REACTIONS (4)
  - Malaise [Unknown]
  - Breast operation [Unknown]
  - Viral infection [Unknown]
  - Feeling hot [Unknown]

NARRATIVE: CASE EVENT DATE: 20151020
